FAERS Safety Report 17301106 (Version 7)
Quarter: 2022Q1

REPORT INFORMATION
  Report Type: Spontaneous
  Country: US (occurrence: US)
  Receive Date: 20200122
  Receipt Date: 20220119
  Transmission Date: 20220423
  Serious: No
  Sender: FDA-Public Use
  Company Number: US-PFIZER INC-2020027401

PATIENT
  Age: 37 Year
  Sex: Male
  Weight: 120.2 kg

DRUGS (5)
  1. SOMAVERT [Suspect]
     Active Substance: PEGVISOMANT
     Indication: Acromegaly
     Dosage: 20 MG, DAILY
     Dates: start: 201902
  2. SOMAVERT [Suspect]
     Active Substance: PEGVISOMANT
     Dosage: 25 MG, DAILY [25MG/DAY, 7DAYS/WK]
  3. LEVOTHYROXINE [Concomitant]
     Active Substance: LEVOTHYROXINE
     Indication: Acromegaly
     Dosage: 112 UG, 1X/DAY
  4. HYDROCORTISONE [Concomitant]
     Active Substance: HYDROCORTISONE
     Indication: Acromegaly
     Dosage: 30 MG, DAILY (3 TABLETS DAILY SPLIT UP)
  5. CABERGOLINE [Concomitant]
     Active Substance: CABERGOLINE
     Indication: Acromegaly
     Dosage: 0.25 MG, 2X/WEEK [1/2 TABLET TWICE WEEKLY]

REACTIONS (2)
  - Drug ineffective [Unknown]
  - Insulin-like growth factor increased [Unknown]
